FAERS Safety Report 10613496 (Version 1)
Quarter: 2014Q4

REPORT INFORMATION
  Report Type: Report from Study
  Country: ES (occurrence: ES)
  Receive Date: 20141128
  Receipt Date: 20141128
  Transmission Date: 20150529
  Serious: Yes (Death)
  Sender: FDA-Public Use
  Company Number: ES-CELGENE-ESP-2014104994

PATIENT
  Age: 77 Year

DRUGS (1)
  1. VIDAZA [Suspect]
     Active Substance: AZACITIDINE
     Indication: MYELODYSPLASTIC SYNDROME
     Route: 065
     Dates: start: 201404, end: 201409

REACTIONS (2)
  - Myelodysplastic syndrome [Unknown]
  - Death [Fatal]

NARRATIVE: CASE EVENT DATE: 2014
